FAERS Safety Report 7180716-7 (Version None)
Quarter: 2010Q4

REPORT INFORMATION
  Report Type: 
  Country: None (occurrence: None)
  Receive Date: 20101221
  Receipt Date: 20101215
  Transmission Date: 20110411
  Serious: Yes (Hospitalization, Other)
  Sender: FDA-Public Use
  Company Number: DK-ABBOTT-10P-044-0687107-00

PATIENT
  Sex: Male

DRUGS (6)
  1. HUMIRA [Suspect]
     Indication: PSORIATIC ARTHROPATHY
     Dates: start: 20101110, end: 20101124
  2. DICLON UNKNOWN MAH [Concomitant]
     Indication: PSORIATIC ARTHROPATHY
  3. NEURIL UNKNOWN MAH [Concomitant]
     Indication: PAIN
  4. UNSPECIFIED TREATMENT FOR HIGH CHOLESTEROL AND HYPERTENSION [Concomitant]
     Indication: BLOOD CHOLESTEROL INCREASED
  5. UNSPECIFIED TREATMENT FOR HIGH CHOLESTEROL AND HYPERTENSION [Concomitant]
     Indication: HYPERTENSION
  6. METHOTREXATE UNKNOWN MAH [Concomitant]
     Indication: PRODUCT USED FOR UNKNOWN INDICATION

REACTIONS (3)
  - ASTHMA [None]
  - COUGH [None]
  - PHARYNGEAL INFLAMMATION [None]
